FAERS Safety Report 16649080 (Version 1)
Quarter: 2019Q3

REPORT INFORMATION
  Report Type: Spontaneous
  Country: FR (occurrence: FR)
  Receive Date: 20190730
  Receipt Date: 20190730
  Transmission Date: 20191004
  Serious: Yes (Other)
  Sender: FDA-Public Use
  Company Number: FR-ASTRAZENECA-2019SF07765

PATIENT
  Age: 854 Month
  Sex: Female

DRUGS (3)
  1. LYNPARZA [Suspect]
     Active Substance: OLAPARIB
     Indication: OVARIAN CANCER
     Dosage: 800 MG DAILY (8 CAPSULES IN THE MORNING AND IN THE EVENING)
     Route: 048
     Dates: start: 2017
  2. MEDROL [Interacting]
     Active Substance: METHYLPREDNISOLONE
     Dosage: 2 TABLETS DAILY
     Route: 065
  3. MEDROL [Interacting]
     Active Substance: METHYLPREDNISOLONE
     Route: 065

REACTIONS (4)
  - Urinary tract infection [Not Recovered/Not Resolved]
  - Drug interaction [Unknown]
  - Arthralgia [Not Recovered/Not Resolved]
  - Subdural haematoma [Unknown]

NARRATIVE: CASE EVENT DATE: 201902
